FAERS Safety Report 10200242 (Version 2)
Quarter: 2014Q2

REPORT INFORMATION
  Report Type: Spontaneous
  Country: US (occurrence: US)
  Receive Date: 20140527
  Receipt Date: 20140609
  Transmission Date: 20141212
  Serious: Yes (Other)
  Sender: FDA-Public Use
  Company Number: US-PFIZER INC-2014142858

PATIENT
  Sex: Female

DRUGS (2)
  1. XELJANZ [Suspect]
     Dosage: UNK
  2. ZITHROMAX [Suspect]
     Dosage: UNK

REACTIONS (3)
  - Tendon disorder [Unknown]
  - Malaise [Unknown]
  - Immune system disorder [Unknown]
